FAERS Safety Report 23503843 (Version 1)
Quarter: 2024Q1

REPORT INFORMATION
  Report Type: Spontaneous
  Country: FR (occurrence: FR)
  Receive Date: 20240209
  Receipt Date: 20240209
  Transmission Date: 20240409
  Serious: Yes (Other)
  Sender: FDA-Public Use
  Company Number: None

PATIENT
  Age: 36 Year
  Sex: Female
  Weight: 88 kg

DRUGS (3)
  1. FLUCONAZOLE [Suspect]
     Active Substance: FLUCONAZOLE
     Indication: Endocarditis candida
     Route: 048
     Dates: start: 20230517
  2. PANTOPRAZOLE [Suspect]
     Active Substance: PANTOPRAZOLE
     Indication: Prophylaxis
     Route: 048
     Dates: start: 20230501
  3. INNOHEP [Suspect]
     Active Substance: TINZAPARIN SODIUM
     Indication: Arterial thrombosis
     Dosage: DOSAGE: 18000 10^6 IU 18,000 IU ANTI-XA/0.9 ML, SOLUTION FOR INJECTION (S.C.) IN PRE-FILLED SYRINGE
     Route: 058
     Dates: start: 20230511

REACTIONS (1)
  - Alopecia [Not Recovered/Not Resolved]

NARRATIVE: CASE EVENT DATE: 20230601
